FAERS Safety Report 11038120 (Version 1)
Quarter: 2015Q2

REPORT INFORMATION
  Report Type: Spontaneous
  Country: JP (occurrence: None)
  Receive Date: 20150414
  Receipt Date: 20150414
  Transmission Date: 20150821
  Serious: Yes (Other)
  Sender: FDA-Public Use
  Company Number: 2015BV000026

PATIENT

DRUGS (2)
  1. ZONISAMIDE. [Concomitant]
     Active Substance: ZONISAMIDE
  2. VALPROATE [Suspect]
     Active Substance: VALPROIC ACID
     Indication: PRODUCT USED FOR UNKNOWN INDICATION

REACTIONS (2)
  - Fanconi syndrome [None]
  - Tachypnoea [None]
